FAERS Safety Report 19801349 (Version 1)
Quarter: 2021Q3

REPORT INFORMATION
  Report Type: Spontaneous
  Country: US (occurrence: US)
  Receive Date: 20210908
  Receipt Date: 20210908
  Transmission Date: 20211014
  Serious: No
  Sender: FDA-Public Use
  Company Number: US-ELI_LILLY_AND_COMPANY-US202108006244

PATIENT
  Age: 51 Year
  Sex: Male

DRUGS (4)
  1. TRULICITY [Suspect]
     Active Substance: DULAGLUTIDE
     Indication: PRODUCT USED FOR UNKNOWN INDICATION
     Dosage: UNK, UNKNOWN
     Route: 065
  2. GLIMEPIRIDE. [Concomitant]
     Active Substance: GLIMEPIRIDE
     Indication: DIABETES MELLITUS
     Dosage: 1 MG, DAILY
  3. TOUJEO [Concomitant]
     Active Substance: INSULIN GLARGINE
     Indication: DIABETES MELLITUS
     Dosage: 20 MG, PRN, 18?20 MG DAILY
     Dates: start: 202008
  4. METFORMIN [Concomitant]
     Active Substance: METFORMIN HYDROCHLORIDE
     Indication: DIABETES MELLITUS
     Dosage: 1000 MG, DAILY

REACTIONS (14)
  - Glycosylated haemoglobin increased [Unknown]
  - Sciatica [Not Recovered/Not Resolved]
  - Fall [Recovered/Resolved]
  - Dehydration [Recovered/Resolved]
  - COVID-19 [Recovered/Resolved]
  - Hypotension [Recovered/Resolved]
  - Joint noise [Not Recovered/Not Resolved]
  - Blood glucose increased [Unknown]
  - Nerve compression [Not Recovered/Not Resolved]
  - Vomiting [Recovered/Resolved]
  - Weight decreased [Recovered/Resolved]
  - Sensory loss [Not Recovered/Not Resolved]
  - Gout [Recovered/Resolved]
  - Vertigo [Recovered/Resolved]

NARRATIVE: CASE EVENT DATE: 202001
